FAERS Safety Report 23979152 (Version 2)
Quarter: 2024Q2

REPORT INFORMATION
  Report Type: Report from Study
  Country: US (occurrence: US)
  Receive Date: 20240615
  Receipt Date: 20240619
  Transmission Date: 20240716
  Serious: Yes (Hospitalization)
  Sender: FDA-Public Use
  Company Number: US-ABBVIE-5766138

PATIENT
  Age: 66 Year
  Sex: Male
  Weight: 79.378 kg

DRUGS (2)
  1. RINVOQ [Suspect]
     Active Substance: UPADACITINIB
     Indication: Rheumatoid arthritis
     Route: 048
     Dates: start: 20221125
  2. RINVOQ [Suspect]
     Active Substance: UPADACITINIB
     Indication: Rheumatoid arthritis
     Route: 048

REACTIONS (7)
  - Road traffic accident [Recovering/Resolving]
  - Injury [Recovering/Resolving]
  - Jaw fracture [Recovering/Resolving]
  - Craniofacial fracture [Recovering/Resolving]
  - Tongue injury [Recovering/Resolving]
  - Musculoskeletal disorder [Not Recovered/Not Resolved]
  - Intervertebral disc disorder [Not Recovered/Not Resolved]

NARRATIVE: CASE EVENT DATE: 20240501
